FAERS Safety Report 5802166-5 (Version None)
Quarter: 2008Q3

REPORT INFORMATION
  Report Type: 
  Country: None (occurrence: None)
  Receive Date: 20080707
  Receipt Date: 20080625
  Transmission Date: 20090109
  Serious: Yes (Other)
  Sender: FDA-Public Use
  Company Number: US-PFIZER INC-2008039226

PATIENT
  Sex: Female
  Weight: 70.3 kg

DRUGS (5)
  1. CHANTIX [Suspect]
     Indication: SMOKING CESSATION THERAPY
     Route: 048
  2. CELEXA [Concomitant]
  3. KLONOPIN [Concomitant]
  4. MACROBID [Concomitant]
  5. METHADON HCL TAB [Concomitant]

REACTIONS (3)
  - CONVULSION [None]
  - MENTAL DISORDER [None]
  - SUICIDAL BEHAVIOUR [None]
